FAERS Safety Report 11426964 (Version 1)
Quarter: 2015Q3

REPORT INFORMATION
  Report Type: Spontaneous
  Country: US (occurrence: US)
  Receive Date: 20150821
  Receipt Date: 20150821
  Transmission Date: 20151125
  Serious: No
  Sender: FDA-Public Use
  Company Number: US-ELI_LILLY_AND_COMPANY-US201308006572

PATIENT
  Sex: Male

DRUGS (1)
  1. CIALIS [Suspect]
     Active Substance: TADALAFIL
     Indication: ERECTILE DYSFUNCTION
     Dosage: 10 MG, PRN
     Dates: start: 201303

REACTIONS (5)
  - Somnolence [Unknown]
  - Dyspepsia [Unknown]
  - Ocular discomfort [Unknown]
  - Suspected counterfeit product [Unknown]
  - Drug ineffective [Unknown]
